FAERS Safety Report 11926247 (Version 3)
Quarter: 2016Q1

REPORT INFORMATION
  Report Type: Spontaneous
  Country: US (occurrence: US)
  Receive Date: 20160119
  Receipt Date: 20160302
  Transmission Date: 20160526
  Serious: No
  Sender: FDA-Public Use
  Company Number: US-AMGEN-USASP2016003520

PATIENT
  Age: 44 Year
  Sex: Female

DRUGS (1)
  1. ENBREL [Suspect]
     Active Substance: ETANERCEPT
     Indication: PSORIATIC ARTHROPATHY
     Dosage: 50 MG, QWK
     Route: 058

REACTIONS (8)
  - Folliculitis [Unknown]
  - Migraine [Unknown]
  - Lymph node pain [Recovered/Resolved]
  - Vaginal infection [Unknown]
  - Bacterial infection [Unknown]
  - Lymphadenopathy [Recovered/Resolved]
  - Infection [Unknown]
  - Nausea [Unknown]

NARRATIVE: CASE EVENT DATE: 2016
